FAERS Safety Report 14195418 (Version 1)
Quarter: 2017Q4

REPORT INFORMATION
  Report Type: Spontaneous
  Country: US (occurrence: None)
  Receive Date: 20171116
  Receipt Date: 20171116
  Transmission Date: 20180321
  Serious: No
  Sender: FDA-Public Use
  Company Number: None

PATIENT
  Age: 72 Year
  Sex: Female

DRUGS (1)
  1. IMATINIB 400 MG [Suspect]
     Active Substance: IMATINIB
     Indication: THYROID CANCER
     Route: 048
     Dates: start: 20171021

REACTIONS (2)
  - Eye swelling [None]
  - Weight increased [None]

NARRATIVE: CASE EVENT DATE: 20171101
